FAERS Safety Report 4339125-8 (Version None)
Quarter: 2004Q2

REPORT INFORMATION
  Report Type: 
  Country: None (occurrence: None)
  Receive Date: 20040412
  Receipt Date: 20040331
  Transmission Date: 20050107
  Serious: Yes (Death)
  Sender: FDA-Public Use
  Company Number: US-JNJFOC-20040400263

PATIENT
  Age: 77 Year
  Sex: Male

DRUGS (2)
  1. DURAGESIC [Suspect]
     Indication: PAIN
     Dosage: 100 UG/HR, 1IN 72 HOUR, TRANSDERMAL
     Route: 062
     Dates: start: 20030101, end: 20040305
  2. DILAUDID [Concomitant]

REACTIONS (3)
  - COMPLICATIONS OF TRANSPLANT SURGERY [None]
  - FUNGAEMIA [None]
  - MULTI-ORGAN FAILURE [None]
